FAERS Safety Report 18436753 (Version 2)
Quarter: 2020Q4

REPORT INFORMATION
  Report Type: Spontaneous
  Country: BG (occurrence: BG)
  Receive Date: 20201028
  Receipt Date: 20201113
  Transmission Date: 20210114
  Serious: Yes (Hospitalization, Other)
  Sender: FDA-Public Use
  Company Number: BG-BAYER-2020-226581

PATIENT
  Age: 63 Year
  Sex: Female

DRUGS (2)
  1. NEXAVAR [Suspect]
     Active Substance: SORAFENIB
     Indication: THYROID CANCER
     Dosage: 200 MG, BID
     Route: 048
     Dates: start: 20180801, end: 20200903
  2. NEXAVAR [Suspect]
     Active Substance: SORAFENIB
     Indication: THYROID CANCER
     Dosage: 400 MG, BID
     Route: 048
     Dates: start: 20170428

REACTIONS (5)
  - Gastrointestinal toxicity [Recovered/Resolved]
  - Fatigue [None]
  - Vomiting [Recovered/Resolved]
  - Palmar-plantar erythrodysaesthesia syndrome [Recovered/Resolved]
  - Skin toxicity [Recovered/Resolved]

NARRATIVE: CASE EVENT DATE: 20180801
